FAERS Safety Report 4734809-1 (Version None)
Quarter: 2005Q3

REPORT INFORMATION
  Report Type: 
  Country: None (occurrence: None)
  Receive Date: 20050729
  Receipt Date: 20050719
  Transmission Date: 20060218
  Serious: Yes (Hospitalization, Other)
  Sender: FDA-Public Use
  Company Number: 2005040569

PATIENT
  Age: 79 Year
  Sex: Female
  Weight: 65.318 kg

DRUGS (4)
  1. NORVASC [Suspect]
     Indication: HYPERTENSION
     Dosage: 5 MG (5 MG, 1 IN 24 HR), ORAL
     Route: 048
  2. DRUG, (DRUG UNSPECIFIED) [Suspect]
     Indication: HYPERTENSION
  3. VERAPAMIL [Suspect]
     Indication: ILL-DEFINED DISORDER
     Dates: start: 20030401, end: 20030401
  4. POTASSIUM CHLORIDE [Concomitant]

REACTIONS (5)
  - BLOOD PRESSURE ABNORMAL [None]
  - CEREBROVASCULAR ACCIDENT [None]
  - DIZZINESS [None]
  - WALKING AID USER [None]
  - WRONG DRUG ADMINISTERED [None]
